FAERS Safety Report 24339237 (Version 1)
Quarter: 2024Q3

REPORT INFORMATION
  Report Type: Spontaneous
  Country: DE (occurrence: DE)
  Receive Date: 20240919
  Receipt Date: 20240919
  Transmission Date: 20241016
  Serious: Yes (Other)
  Sender: PFIZER
  Company Number: DE-PFIZER INC-PV202200008821

PATIENT
  Age: 40 Year
  Sex: Male

DRUGS (3)
  1. LORLATINIB [Suspect]
     Active Substance: LORLATINIB
     Dosage: UNK
     Dates: start: 202112, end: 202205
  2. LORLATINIB [Suspect]
     Active Substance: LORLATINIB
     Dosage: 75 MG
     Dates: start: 202205
  3. DEXAMETHASONE [Concomitant]
     Active Substance: DEXAMETHASONE
     Dosage: UNK

REACTIONS (7)
  - Radiation necrosis [Unknown]
  - Paresis [Unknown]
  - Oedema [Recovered/Resolved]
  - Weight increased [Recovered/Resolved]
  - Memory impairment [Unknown]
  - Dysgraphia [Unknown]
  - Nervous system disorder [Unknown]

NARRATIVE: CASE EVENT DATE: 20220301
